FAERS Safety Report 7043158-0 (Version None)
Quarter: 2010Q4

REPORT INFORMATION
  Report Type: 
  Country: None (occurrence: None)
  Receive Date: 20101013
  Receipt Date: 20100218
  Transmission Date: 20110411
  Serious: No
  Sender: FDA-Public Use
  Company Number: US-ASTRAZENECA-2010SE03188

PATIENT
  Age: 32 Year
  Sex: Female
  Weight: 62.6 kg

DRUGS (2)
  1. SYMBICORT [Suspect]
     Dosage: 160/4.5 UG 2 PUFFS TWO TIMES A DAY
     Route: 055
     Dates: start: 20090101
  2. PROAIR HFA [Concomitant]

REACTIONS (2)
  - ASTHMA [None]
  - PRODUCTIVE COUGH [None]
